FAERS Safety Report 5349534-6 (Version None)
Quarter: 2007Q2

REPORT INFORMATION
  Report Type: 
  Country: None (occurrence: None)
  Receive Date: 20070607
  Receipt Date: 20070530
  Transmission Date: 20071010
  Serious: Yes (Death)
  Sender: FDA-Public Use
  Company Number: DE-ROCHE-497232

PATIENT
  Age: 18 Year
  Sex: Female
  Weight: 55 kg

DRUGS (2)
  1. ROACCUTAN [Suspect]
     Indication: ACNE
     Route: 065
     Dates: start: 20030331, end: 20030731
  2. CONTRACEPTIVE NOS [Concomitant]

REACTIONS (1)
  - LUNG ADENOCARCINOMA [None]
